FAERS Safety Report 7694177-2 (Version None)
Quarter: 2011Q3

REPORT INFORMATION
  Report Type: 
  Country: None (occurrence: None)
  Receive Date: 20110819
  Receipt Date: 20110808
  Transmission Date: 20111222
  Serious: Yes (Hospitalization, Other)
  Sender: FDA-Public Use
  Company Number: US-ELI_LILLY_AND_COMPANY-US201108006033

PATIENT

DRUGS (3)
  1. CETUXIMAB [Concomitant]
     Dosage: 400 MG/M2, LOADING DOSE
     Route: 065
  2. GEMCITABINE HYDROCHLORIDE [Suspect]
     Indication: ADENOCARCINOMA PANCREAS
     Dosage: 1000 MG/M2, EVERY 2 WEEKS
     Route: 065
  3. OXALIPLATIN [Concomitant]
     Dosage: 100 MG/M2, EVERY 2 WEEKS
     Route: 065

REACTIONS (1)
  - DEHYDRATION [None]
